FAERS Safety Report 11981609 (Version 8)
Quarter: 2016Q3

REPORT INFORMATION
  Report Type: Report from Study
  Country: CA (occurrence: CA)
  Receive Date: 20160131
  Receipt Date: 20160701
  Transmission Date: 20161109
  Serious: Yes (Death, Hospitalization)
  Sender: FDA-Public Use
  Company Number: PHHY2014CA148782

PATIENT
  Age: 77 Year
  Sex: Male

DRUGS (3)
  1. BISOPROLOL [Concomitant]
     Active Substance: BISOPROLOL
     Indication: PRODUCT USED FOR UNKNOWN INDICATION
     Dosage: 2.5 MG, BID
     Route: 065
  2. SANDOSTATIN [Suspect]
     Active Substance: OCTREOTIDE ACETATE
     Indication: NEUROENDOCRINE TUMOUR
     Dosage: UNK
     Route: 058
     Dates: start: 20141106
  3. SANDOSTATIN LAR DEPOT [Suspect]
     Active Substance: OCTREOTIDE ACETATE
     Indication: NEUROENDOCRINE TUMOUR
     Dosage: 30 MG, QMO (EVERY 4 WEEKS)
     Route: 030
     Dates: start: 20141106

REACTIONS (19)
  - Diabetes mellitus inadequate control [Recovered/Resolved]
  - Gastrointestinal disorder [Unknown]
  - Nasopharyngitis [Unknown]
  - Blood pressure diastolic decreased [Unknown]
  - Pain [Recovered/Resolved]
  - Malaise [Unknown]
  - Flatulence [Recovering/Resolving]
  - Asthenia [Unknown]
  - Blood pressure systolic increased [Unknown]
  - Dysstasia [Unknown]
  - Weight decreased [Unknown]
  - Neuroendocrine tumour [Fatal]
  - Chills [Unknown]
  - Hypoglycaemia [Unknown]
  - Influenza like illness [Unknown]
  - Decreased appetite [Unknown]
  - Body temperature decreased [Unknown]
  - Fatigue [Unknown]
  - Seizure [Unknown]

NARRATIVE: CASE EVENT DATE: 20141106
